FAERS Safety Report 14615484 (Version 4)
Quarter: 2018Q2

REPORT INFORMATION
  Report Type: Report from Study
  Country: None (occurrence: CO)
  Receive Date: 20180308
  Receipt Date: 20180503
  Transmission Date: 20180711
  Serious: Yes (Death, Life-Threatening, Hospitalization)
  Sender: FDA-Public Use
  Company Number: CO-ABBVIE-18S-036-2280602-00

PATIENT
  Age: 77 Year
  Sex: Male

DRUGS (1)
  1. ZEMPLAR [Suspect]
     Active Substance: PARICALCITOL
     Indication: HYPERPARATHYROIDISM SECONDARY
     Route: 048
     Dates: start: 20150108, end: 20180113

REACTIONS (6)
  - Pleural effusion [Not Recovered/Not Resolved]
  - Cardio-respiratory arrest [Fatal]
  - Cardiac pacemaker insertion [Recovering/Resolving]
  - Pleural effusion [Not Recovered/Not Resolved]
  - Pneumothorax [Recovering/Resolving]
  - Nosocomial infection [Recovering/Resolving]

NARRATIVE: CASE EVENT DATE: 20180114
